FAERS Safety Report 9757914 (Version 1)
Quarter: 2013Q4

REPORT INFORMATION
  Report Type: Spontaneous
  Country: FR (occurrence: FR)
  Receive Date: 20131216
  Receipt Date: 20131216
  Transmission Date: 20140711
  Serious: Yes (Hospitalization)
  Sender: FDA-Public Use
  Company Number: FR-JNJFOC-20131202220

PATIENT
  Age: 82 Year
  Sex: Female

DRUGS (10)
  1. RISPERDAL [Suspect]
     Indication: AGITATION
     Route: 048
     Dates: start: 201204
  2. RISPERDAL [Suspect]
     Indication: DEMENTIA
     Route: 048
     Dates: start: 201204
  3. SEROPLEX [Suspect]
     Indication: AGITATION
     Route: 048
     Dates: start: 201204, end: 20120524
  4. SEROPLEX [Suspect]
     Indication: DEMENTIA
     Route: 048
     Dates: start: 201204, end: 20120524
  5. EUCREAS [Suspect]
     Indication: PRODUCT USED FOR UNKNOWN INDICATION
     Dosage: 50 MG/850 MG
     Route: 048
     Dates: end: 201204
  6. KARDEGIC [Concomitant]
     Indication: PRODUCT USED FOR UNKNOWN INDICATION
     Dosage: 160
     Route: 065
     Dates: start: 201202
  7. IKOREL [Concomitant]
     Indication: PRODUCT USED FOR UNKNOWN INDICATION
     Route: 065
     Dates: start: 201202
  8. CRESTOR [Concomitant]
     Indication: PRODUCT USED FOR UNKNOWN INDICATION
     Route: 065
     Dates: start: 201202
  9. DUPHALAC [Concomitant]
     Indication: PRODUCT USED FOR UNKNOWN INDICATION
     Route: 065
     Dates: start: 201204
  10. CACIT NOS [Concomitant]
     Indication: PRODUCT USED FOR UNKNOWN INDICATION
     Route: 065
     Dates: start: 201204

REACTIONS (1)
  - Pemphigoid [Not Recovered/Not Resolved]
